FAERS Safety Report 12342618 (Version 1)
Quarter: 2016Q2

REPORT INFORMATION
  Report Type: Spontaneous
  Country: US (occurrence: US)
  Receive Date: 20160506
  Receipt Date: 20160506
  Transmission Date: 20160815
  Serious: No
  Sender: FDA-Public Use
  Company Number: US-GLAXOSMITHKLINE-US2016061029

PATIENT
  Age: 5 Year

DRUGS (1)
  1. FLONASE [Suspect]
     Active Substance: FLUTICASONE PROPIONATE
     Indication: EAR DISCOMFORT
     Dosage: UNK

REACTIONS (7)
  - Aggression [Unknown]
  - Psychomotor hyperactivity [Recovered/Resolved]
  - Drug administered to patient of inappropriate age [Unknown]
  - Middle insomnia [Recovered/Resolved]
  - Hallucination [Recovered/Resolved]
  - Drug prescribing error [Recovered/Resolved]
  - Off label use [Unknown]
